FAERS Safety Report 8611293-9 (Version None)
Quarter: 2012Q3

REPORT INFORMATION
  Report Type: 
  Country: None (occurrence: None)
  Receive Date: 20120822
  Receipt Date: 20120817
  Transmission Date: 20120928
  Serious: Yes (Death, Hospitalization)
  Sender: FDA-Public Use
  Company Number: US-ELI_LILLY_AND_COMPANY-US201208000304

PATIENT
  Sex: Female

DRUGS (2)
  1. ADCIRCA [Suspect]
     Indication: PULMONARY HYPERTENSION
     Dosage: 40 MG, QD
  2. ADCIRCA [Suspect]
     Dosage: 20 MG, QD
     Dates: start: 20120227

REACTIONS (2)
  - DEATH [None]
  - HOSPITALISATION [None]
